FAERS Safety Report 8733820 (Version 2)
Quarter: 2012Q4

REPORT INFORMATION
  Report Type: Spontaneous
  Country: CA (occurrence: None)
  Receive Date: 20120802
  Receipt Date: 20120816
  Transmission Date: 20130627
  Serious: Yes (Other)
  Sender: FDA-Public Use
  Company Number: JPI-P-022818

PATIENT
  Age: 55 Year
  Sex: Female

DRUGS (1)
  1. XYREM [Suspect]
     Indication: DRUG USE FOR UNKNOWN INDICATION
     Dosage: 4 GM (2 GM, 2 IN 1 D), ORAL
     Route: 048

REACTIONS (6)
  - Fracture [None]
  - Contusion [None]
  - Fall [None]
  - Epistaxis [None]
  - Laceration [None]
  - Periorbital haematoma [None]
